FAERS Safety Report 6203839-5 (Version None)
Quarter: 2009Q2

REPORT INFORMATION
  Report Type: 
  Country: None (occurrence: None)
  Receive Date: 20090527
  Receipt Date: 20090520
  Transmission Date: 20091009
  Serious: Yes (Other)
  Sender: FDA-Public Use
  Company Number: FR-PFIZER INC-2009216839

PATIENT

DRUGS (2)
  1. TAHOR [Suspect]
     Indication: MYOCARDIAL INFARCTION
     Dosage: 20 MG, 1X/DAY
     Dates: start: 20090407, end: 20090501
  2. LEVOTHYROX [Concomitant]
     Dosage: UNK

REACTIONS (2)
  - BLOOD THYROID STIMULATING HORMONE DECREASED [None]
  - HEPATITIS [None]
